FAERS Safety Report 13632717 (Version 1)
Quarter: 2017Q2

REPORT INFORMATION
  Report Type: Spontaneous
  Country: US (occurrence: US)
  Receive Date: 20170531
  Receipt Date: 20170531
  Transmission Date: 20170830
  Serious: No
  Sender: FDA-Public Use
  Company Number: US-ASTELLAS-1474829

PATIENT
  Age: 79 Year
  Sex: Female

DRUGS (3)
  1. TARCEVA [Suspect]
     Active Substance: ERLOTINIB HYDROCHLORIDE
     Indication: NEOPLASM MALIGNANT
  2. TRAMADOL. [Concomitant]
     Active Substance: TRAMADOL
  3. TARCEVA [Suspect]
     Active Substance: ERLOTINIB HYDROCHLORIDE
     Indication: PANCREATIC CARCINOMA
     Dosage: FREQUENCY: DAILY
     Route: 048
     Dates: start: 20140924

REACTIONS (10)
  - Abdominal pain upper [Unknown]
  - Dysgeusia [Unknown]
  - Diarrhoea [Unknown]
  - Muscle spasms [Unknown]
  - Vertigo [Unknown]
  - Abdominal pain [Unknown]
  - Back pain [Unknown]
  - Decreased appetite [Unknown]
  - Productive cough [Unknown]
  - Abdominal discomfort [Unknown]

NARRATIVE: CASE EVENT DATE: 20141017
